FAERS Safety Report 7438867-5 (Version None)
Quarter: 2011Q2

REPORT INFORMATION
  Report Type: 
  Country: None (occurrence: None)
  Receive Date: 20110426
  Receipt Date: 20110418
  Transmission Date: 20111010
  Serious: Yes (Life-Threatening, Hospitalization)
  Sender: FDA-Public Use
  Company Number: JP-MERCK-1007USA00379

PATIENT
  Age: 74 Year
  Sex: Female
  Weight: 62 kg

DRUGS (7)
  1. MOBIC [Concomitant]
     Indication: ANALGESIC THERAPY
     Route: 048
     Dates: start: 20030910
  2. SHAKUYAKU-KANZO-TO [Suspect]
     Indication: MYALGIA
     Route: 048
     Dates: start: 19991230, end: 20100206
  3. MULCHNES [Concomitant]
     Indication: ANALGESIC THERAPY
     Dosage: 1-2 PIECES/DAY
     Route: 061
     Dates: start: 20050405
  4. AMLODIN OD [Concomitant]
     Indication: HYPERLIPIDAEMIA
     Route: 048
     Dates: start: 20061014
  5. CRESTOR [Concomitant]
     Indication: HYPERLIPIDAEMIA
     Route: 048
     Dates: start: 20061014
  6. FLUVASTATIN SODIUM [Concomitant]
     Indication: HYPERLIPIDAEMIA
     Route: 048
  7. HYZAAR [Suspect]
     Indication: HYPERTENSION
     Route: 048
     Dates: start: 20081129

REACTIONS (4)
  - HYPOKALAEMIA [None]
  - PSEUDOALDOSTERONISM [None]
  - MYOPATHY [None]
  - DRUG INTERACTION [None]
